FAERS Safety Report 4926104-2 (Version None)
Quarter: 2006Q1

REPORT INFORMATION
  Report Type: 
  Country: None (occurrence: None)
  Receive Date: 20060228
  Receipt Date: 20050818
  Transmission Date: 20060701
  Serious: Yes (Other)
  Sender: FDA-Public Use
  Company Number: US-GLAXOSMITHKLINE-A0570861A

PATIENT
  Age: 55 Year
  Sex: Female

DRUGS (3)
  1. LAMICTAL [Suspect]
     Indication: BIPOLAR DISORDER
     Dosage: 100MG PER DAY
     Route: 048
  2. WELLBUTRIN XL [Concomitant]
  3. THYROID TAB [Concomitant]

REACTIONS (2)
  - ERYTHEMA [None]
  - RASH [None]
